FAERS Safety Report 6925551-7 (Version None)
Quarter: 2010Q3

REPORT INFORMATION
  Report Type: 
  Country: None (occurrence: None)
  Receive Date: 20100813
  Receipt Date: 20100813
  Transmission Date: 20110219
  Serious: No
  Sender: FDA-Public Use
  Company Number: None

PATIENT
  Age: 67 Year
  Sex: Male
  Weight: 90.7194 kg

DRUGS (1)
  1. ADVAIR DISKUS 500/50 [Suspect]
     Indication: ASTHMA
     Dosage: I PUFF 2X/DAY PO
     Route: 048
     Dates: start: 20100719, end: 20100811

REACTIONS (2)
  - PRODUCT QUALITY ISSUE [None]
  - UNDERDOSE [None]
